FAERS Safety Report 5712289-7 (Version None)
Quarter: 2008Q2

REPORT INFORMATION
  Report Type: 
  Country: None (occurrence: None)
  Receive Date: 20080421
  Receipt Date: 20080421
  Transmission Date: 20081010
  Serious: Yes (Hospitalization)
  Sender: FDA-Public Use
  Company Number: None

PATIENT
  Age: 62 Year
  Sex: Male

DRUGS (2)
  1. WARFARIN SODIUM [Suspect]
     Dosage: 5 MG HS PO
     Route: 048
     Dates: start: 20080312, end: 20080317
  2. ENOXAPARIN SODIUM [Suspect]
     Dosage: 80 MG BID SQ
     Route: 058
     Dates: start: 20080312, end: 20080317

REACTIONS (2)
  - GASTRIC HAEMORRHAGE [None]
  - HYPOTENSION [None]
